FAERS Safety Report 20417768 (Version 1)
Quarter: 2022Q1

REPORT INFORMATION
  Report Type: Spontaneous
  Country: None (occurrence: IE)
  Receive Date: 20220202
  Receipt Date: 20220202
  Transmission Date: 20220424
  Serious: Yes (Death, Hospitalization)
  Sender: FDA-Public Use
  Company Number: IE-Nova Laboratories Limited-2124542

PATIENT
  Age: 68 Year
  Sex: Male
  Weight: 110.00 kg

DRUGS (2)
  1. PURIXAN [Suspect]
     Active Substance: MERCAPTOPURINE
     Indication: Product used for unknown indication
     Dates: start: 202107
  2. BESPONSA (INOTUZUMAB OZOGAMICIN) [Concomitant]

REACTIONS (4)
  - Shock [None]
  - Gastrointestinal haemorrhage [Fatal]
  - Hepatic necrosis [None]
  - Cholestasis [None]
